FAERS Safety Report 7836037-X (Version None)
Quarter: 2011Q4

REPORT INFORMATION
  Report Type: 
  Country: None (occurrence: None)
  Receive Date: 20111024
  Receipt Date: 20101025
  Transmission Date: 20120403
  Serious: No
  Sender: FDA-Public Use
  Company Number: US-ABBOTT-10P-163-0681227-00

PATIENT
  Sex: Female

DRUGS (2)
  1. LUPRON DEPOT [Suspect]
     Indication: PRODUCT USED FOR UNKNOWN INDICATION
     Dates: start: 20100201
  2. LUPRON DEPOT [Suspect]
     Dates: start: 20101022

REACTIONS (3)
  - HOT FLUSH [None]
  - MENORRHAGIA [None]
  - ENDOMETRIAL ABLATION [None]
